FAERS Safety Report 10159908 (Version 9)
Quarter: 2015Q3

REPORT INFORMATION
  Report Type: Report from Study
  Country: GB (occurrence: GB)
  Receive Date: 20140508
  Receipt Date: 20150721
  Transmission Date: 20151125
  Serious: Yes (Other)
  Sender: FDA-Public Use
  Company Number: GB-BAYER-2014-059448

PATIENT
  Age: 55 Year
  Sex: Male

DRUGS (2)
  1. XENICAL [Suspect]
     Active Substance: ORLISTAT
     Dosage: UNK
     Dates: start: 201402
  2. BETAFERON [Suspect]
     Active Substance: INTERFERON BETA-1B
     Indication: MULTIPLE SCLEROSIS
     Dosage: 250 ?G, QOD
     Route: 058

REACTIONS (17)
  - Pruritus [None]
  - Musculoskeletal pain [Not Recovered/Not Resolved]
  - Depression [None]
  - Hair colour changes [None]
  - Mood swings [Not Recovered/Not Resolved]
  - Drug dose omission [Recovered/Resolved]
  - Feeling abnormal [Not Recovered/Not Resolved]
  - Blood iron increased [Not Recovered/Not Resolved]
  - Multiple sclerosis [Not Recovered/Not Resolved]
  - Muscular weakness [None]
  - Haemochromatosis [Not Recovered/Not Resolved]
  - Hypersomnia [Not Recovered/Not Resolved]
  - Alopecia universalis [Not Recovered/Not Resolved]
  - Injection site pain [Not Recovered/Not Resolved]
  - Injection site erythema [Not Recovered/Not Resolved]
  - Peroneal nerve palsy [Not Recovered/Not Resolved]
  - Somnolence [None]

NARRATIVE: CASE EVENT DATE: 201312
